FAERS Safety Report 7592110-5 (Version None)
Quarter: 2011Q2

REPORT INFORMATION
  Report Type: 
  Country: None (occurrence: None)
  Receive Date: 20110628
  Receipt Date: 20110620
  Transmission Date: 20111010
  Serious: Yes (Other)
  Sender: FDA-Public Use
  Company Number: 2011SP026838

PATIENT
  Age: 11 Year
  Sex: Male
  Weight: 40.8237 kg

DRUGS (3)
  1. CLONIDINE [Suspect]
     Indication: HYPERTENSION
  2. COPPERTONE KIDS CONTINUOUS SPRAY SPF 50 [Suspect]
     Indication: PROPHYLAXIS AGAINST SOLAR RADIATION
     Dosage: TOP
     Route: 061
     Dates: start: 20110604, end: 20110604
  3. VYVANSE [Suspect]
     Indication: ATTENTION DEFICIT/HYPERACTIVITY DISORDER

REACTIONS (7)
  - PRURITUS [None]
  - AURICULAR SWELLING [None]
  - PHARYNGEAL OEDEMA [None]
  - RASH [None]
  - SKIN REACTION [None]
  - LIP SWELLING [None]
  - SWELLING FACE [None]
